FAERS Safety Report 12989178 (Version 1)
Quarter: 2016Q4

REPORT INFORMATION
  Report Type: Spontaneous
  Country: FR (occurrence: FR)
  Receive Date: 20161201
  Receipt Date: 20161201
  Transmission Date: 20170207
  Serious: Yes (Life-Threatening)
  Sender: FDA-Public Use
  Company Number: FR-ORION CORPORATION ORION PHARMA-ENTC2016-0706

PATIENT
  Age: 59 Year
  Sex: Male

DRUGS (10)
  1. PROPOFOL. [Suspect]
     Active Substance: PROPOFOL
     Indication: GENERAL ANAESTHESIA
     Route: 042
     Dates: start: 20160919, end: 20160919
  2. MODOPAR [Suspect]
     Active Substance: BENSERAZIDE HYDROCHLORIDE\LEVODOPA
     Indication: PARKINSON^S DISEASE
     Dosage: 4 DOSES OF 125 MG
     Route: 048
     Dates: start: 20160920
  3. RIVOTRIL [Suspect]
     Active Substance: CLONAZEPAM
     Indication: AGITATION
     Dosage: 3 DOSES OF 2.5 MG
     Route: 048
     Dates: start: 20160920, end: 20161006
  4. SUFENTA [Suspect]
     Active Substance: SUFENTANIL CITRATE
     Indication: GENERAL ANAESTHESIA
     Route: 042
     Dates: start: 20160919, end: 20160919
  5. RITALINE [Suspect]
     Active Substance: METHYLPHENIDATE HYDROCHLORIDE
     Indication: PARKINSON^S DISEASE
     Route: 048
     Dates: start: 201603, end: 20160920
  6. NEUPRO [Suspect]
     Active Substance: ROTIGOTINE
     Indication: PARKINSON^S DISEASE
     Route: 003
     Dates: start: 201205, end: 20160920
  7. STALEVO [Suspect]
     Active Substance: CARBIDOPA\ENTACAPONE\LEVODOPA
     Indication: PARKINSON^S DISEASE
     Dosage: EVERYDAY 8 DOSES
     Route: 048
     Dates: start: 2012, end: 20160920
  8. MANTADIX [Suspect]
     Active Substance: AMANTADINE HYDROCHLORIDE
     Indication: PARKINSON^S DISEASE
     Route: 048
     Dates: start: 2013, end: 20160920
  9. AZILECT [Suspect]
     Active Substance: RASAGILINE MESYLATE
     Indication: PARKINSON^S DISEASE
     Route: 048
     Dates: start: 2015, end: 20150920
  10. VALIUM [Suspect]
     Active Substance: DIAZEPAM
     Indication: AGITATION
     Route: 030
     Dates: start: 20160920

REACTIONS (8)
  - Depression [Unknown]
  - Suicide attempt [Unknown]
  - Agitation [Unknown]
  - Confusional state [Unknown]
  - Anxiety [Unknown]
  - Postoperative delirium [Recovered/Resolved]
  - Persecutory delusion [Recovered/Resolved]
  - Trance [Unknown]

NARRATIVE: CASE EVENT DATE: 201609
